FAERS Safety Report 9286385 (Version 2)
Quarter: 2013Q4

REPORT INFORMATION
  Report Type: Spontaneous
  Country: US (occurrence: US)
  Receive Date: 20130513
  Receipt Date: 20131226
  Transmission Date: 20140711
  Serious: Yes (Hospitalization, Other)
  Sender: FDA-Public Use
  Company Number: US-BAYER-2013-057676

PATIENT
  Age: 39 Year
  Sex: Female
  Weight: 75.74 kg

DRUGS (5)
  1. YAZ [Suspect]
     Indication: CONTRACEPTION
     Dosage: UNK
     Dates: start: 2009, end: 2011
  2. YASMIN [Suspect]
     Indication: CONTRACEPTION
     Dosage: UNK
     Dates: start: 2002, end: 2009
  3. SYNTHROID [Concomitant]
  4. GAS X [Concomitant]
  5. TYLENOL COLD [Concomitant]

REACTIONS (10)
  - Deep vein thrombosis [None]
  - Portal vein thrombosis [None]
  - Thrombosis [None]
  - Abdominal pain [None]
  - Injury [None]
  - Pain [None]
  - Emotional distress [None]
  - General physical health deterioration [None]
  - Anxiety [None]
  - Pain [None]
